FAERS Safety Report 5963568-X (Version None)
Quarter: 2008Q4

REPORT INFORMATION
  Report Type: 
  Country: None (occurrence: None)
  Receive Date: 20081124
  Receipt Date: 20081117
  Transmission Date: 20090506
  Serious: Yes (Life-Threatening, Hospitalization, Congenital Anomaly, Other)
  Sender: FDA-Public Use
  Company Number: US-ABBOTT-08P-163-0484027-00

PATIENT
  Sex: Male

DRUGS (13)
  1. NORVIR [Suspect]
     Indication: DRUG EXPOSURE DURING PREGNANCY
     Route: 064
  2. LAMIVUDINE + ZIDOVUDINE [Suspect]
     Indication: DRUG EXPOSURE DURING PREGNANCY
     Route: 064
  3. ATAZANAVIR SULFATE [Suspect]
     Indication: DRUG EXPOSURE DURING PREGNANCY
     Route: 064
  4. ZIDOVUDINE [Concomitant]
     Indication: DRUG USE FOR UNKNOWN INDICATION
     Dates: start: 20080805
  5. AMPICILLIN [Concomitant]
     Indication: DRUG USE FOR UNKNOWN INDICATION
     Dates: start: 20080805, end: 20080810
  6. GENTAMICIN [Concomitant]
     Indication: DRUG USE FOR UNKNOWN INDICATION
     Dates: start: 20080805, end: 20080810
  7. ACYCLOVIR SODIUM [Concomitant]
     Indication: DRUG USE FOR UNKNOWN INDICATION
     Dates: start: 20080805, end: 20080812
  8. VANCOMYCIN [Concomitant]
     Indication: DRUG USE FOR UNKNOWN INDICATION
     Dates: start: 20080810, end: 20080822
  9. TOBRAMYCIN [Concomitant]
     Indication: DRUG USE FOR UNKNOWN INDICATION
     Dates: start: 20080810, end: 20080814
  10. AMPHOTERICIN B [Concomitant]
     Dates: start: 20080810, end: 20080813
  11. DOPAMINE HCL [Concomitant]
     Indication: DRUG USE FOR UNKNOWN INDICATION
     Dates: start: 20080806, end: 20080811
  12. PHENOBARBITAL TAB [Concomitant]
     Indication: DRUG USE FOR UNKNOWN INDICATION
     Dates: start: 20080809
  13. URSODIOL [Concomitant]
     Indication: DRUG USE FOR UNKNOWN INDICATION
     Dates: start: 20080819

REACTIONS (18)
  - AKINESIA [None]
  - CONGENITAL ANAEMIA [None]
  - CONGENITAL CORONARY ARTERY MALFORMATION [None]
  - CONGENITAL PULMONARY HYPERTENSION [None]
  - DRUG EXPOSURE DURING PREGNANCY [None]
  - HEPATOMEGALY [None]
  - HIV INFECTION [None]
  - HYPERBILIRUBINAEMIA NEONATAL [None]
  - HYPOPNOEA [None]
  - PATENT DUCTUS ARTERIOSUS [None]
  - PORTAL VEIN THROMBOSIS [None]
  - PREMATURE BABY [None]
  - SPLENOMEGALY [None]
  - STAPHYLOCOCCAL BACTERAEMIA [None]
  - THALASSAEMIA ALPHA [None]
  - THROMBOCYTOPENIA [None]
  - VENTRICULAR SEPTAL DEFECT [None]
  - VERTICAL INFECTION TRANSMISSION [None]
